FAERS Safety Report 16374092 (Version 1)
Quarter: 2019Q2

REPORT INFORMATION
  Report Type: Spontaneous
  Country: US (occurrence: US)
  Receive Date: 20190530
  Receipt Date: 20190530
  Transmission Date: 20190711
  Serious: Yes (Other)
  Sender: FDA-Public Use
  Company Number: US-NEUROCRINE BIOSCIENCES INC.-2019NBI01339

PATIENT
  Sex: Female

DRUGS (1)
  1. INGREZZA [Suspect]
     Active Substance: VALBENAZINE
     Indication: DYSKINESIA

REACTIONS (3)
  - Malaise [Unknown]
  - Gastrooesophageal reflux disease [Unknown]
  - Cancer surgery [Unknown]

NARRATIVE: CASE EVENT DATE: 20190509
